FAERS Safety Report 19250051 (Version 1)
Quarter: 2021Q2

REPORT INFORMATION
  Report Type: Spontaneous
  Country: US (occurrence: US)
  Receive Date: 20210512
  Receipt Date: 20210512
  Transmission Date: 20210717
  Serious: No
  Sender: FDA-Public Use
  Company Number: US-ELI_LILLY_AND_COMPANY-US202105001550

PATIENT
  Age: 68 Year
  Sex: Female

DRUGS (1)
  1. BAMLANIVIMAB. [Suspect]
     Active Substance: BAMLANIVIMAB
     Indication: COVID-19
     Dosage: 700 MG, SINGLE
     Route: 042
     Dates: start: 20210319, end: 20210319

REACTIONS (14)
  - Illness [Unknown]
  - Pulmonary pain [Unknown]
  - Bronchitis [Recovered/Resolved]
  - Thrombosis [Unknown]
  - Pain in extremity [Unknown]
  - Mental impairment [Unknown]
  - Asthenia [Unknown]
  - Dyspnoea [Unknown]
  - Diarrhoea [Unknown]
  - Vomiting [Unknown]
  - Disorientation [Unknown]
  - Pain [Unknown]
  - Chills [Unknown]
  - Cough [Recovered/Resolved]

NARRATIVE: CASE EVENT DATE: 202103
